FAERS Safety Report 25076205 (Version 1)
Quarter: 2025Q1

REPORT INFORMATION
  Report Type: Spontaneous
  Country: US (occurrence: None)
  Receive Date: 20250313
  Receipt Date: 20250313
  Transmission Date: 20250408
  Serious: Yes (Hospitalization)
  Sender: FDA-CTU
  Company Number: None

PATIENT
  Age: 39 Year
  Sex: Female
  Weight: 93.6 kg

DRUGS (1)
  1. VYEPTI [Suspect]
     Active Substance: EPTINEZUMAB-JJMR
     Indication: Migraine
     Dosage: OTHER FREQUENCY : EVERY 3 MONTHS;?
     Route: 042
     Dates: start: 20230228, end: 20250121

REACTIONS (6)
  - Infusion related reaction [None]
  - Sneezing [None]
  - Cough [None]
  - Dyspnoea [None]
  - Unresponsive to stimuli [None]
  - Wheezing [None]

NARRATIVE: CASE EVENT DATE: 20250121
